FAERS Safety Report 8428558-6 (Version None)
Quarter: 2012Q2

REPORT INFORMATION
  Report Type: 
  Country: None (occurrence: None)
  Receive Date: 20120612
  Receipt Date: 20120605
  Transmission Date: 20120825
  Serious: No
  Sender: FDA-Public Use
  Company Number: US-PFIZER INC-2012110942

PATIENT

DRUGS (5)
  1. OXYCODONE HYDROCHLORIDE [Suspect]
     Dosage: UNK
  2. SIMVASTATIN [Suspect]
     Dosage: UNK
  3. FLOVENT [Suspect]
     Dosage: UNK
  4. POTASSIUM PENICILLIN G [Suspect]
     Dosage: UNK
  5. DEMEROL [Suspect]
     Dosage: UNK

REACTIONS (2)
  - FAMILIAL RISK FACTOR [None]
  - DRUG HYPERSENSITIVITY [None]
